FAERS Safety Report 4855093-4 (Version None)
Quarter: 2005Q4

REPORT INFORMATION
  Report Type: 
  Country: None (occurrence: None)
  Receive Date: 20051214
  Receipt Date: 20051201
  Transmission Date: 20060501
  Serious: Yes (Death)
  Sender: FDA-Public Use
  Company Number: 2005164058

PATIENT
  Age: 50 Year
  Sex: Male
  Weight: 86.1834 kg

DRUGS (5)
  1. VIAGRA [Suspect]
     Indication: ILL-DEFINED DISORDER
  2. CIALIS [Suspect]
     Indication: ILL-DEFINED DISORDER
  3. LEVITRA [Suspect]
     Indication: ILL-DEFINED DISORDER
  4. ROLAIDS [Concomitant]
  5. TUMS (CALCIUM CARBONATE) [Concomitant]

REACTIONS (2)
  - DYSPEPSIA [None]
  - MYOCARDIAL INFARCTION [None]
